APPROVED DRUG PRODUCT: BUSPIRONE HYDROCHLORIDE
Active Ingredient: BUSPIRONE HYDROCHLORIDE
Strength: 30MG
Dosage Form/Route: TABLET;ORAL
Application: A209696 | Product #005 | TE Code: BX
Applicant: INVENTIA HEALTHCARE PRIVATE LTD
Approved: May 3, 2018 | RLD: No | RS: No | Type: RX